FAERS Safety Report 5899891-7 (Version None)
Quarter: 2008Q3

REPORT INFORMATION
  Report Type: 
  Country: None (occurrence: None)
  Receive Date: 20080926
  Receipt Date: 20080917
  Transmission Date: 20090109
  Serious: Yes (Life-Threatening, Hospitalization)
  Sender: FDA-Public Use
  Company Number: ZA-TYCO HEALTHCARE/MALLINCKRODT-T200801516

PATIENT

DRUGS (2)
  1. OPTIRAY 320 [Suspect]
     Indication: ARTERIOGRAM CORONARY
     Dosage: 150 ML, SINGLE
     Route: 013
     Dates: start: 20080912, end: 20080912
  2. DORMICUM                           /00036201/ [Concomitant]
     Indication: DRUG USE FOR UNKNOWN INDICATION
     Dosage: 2 MG, UNK
     Route: 042
     Dates: start: 20080912, end: 20080912

REACTIONS (3)
  - BRONCHOSPASM [None]
  - NAUSEA [None]
  - VISUAL IMPAIRMENT [None]
